FAERS Safety Report 17908702 (Version 2)
Quarter: 2020Q3

REPORT INFORMATION
  Report Type: Spontaneous
  Country: US (occurrence: US)
  Receive Date: 20200617
  Receipt Date: 20200708
  Transmission Date: 20201103
  Serious: No
  Sender: FDA-Public Use
  Company Number: US-TEVA-2020-US-1788030

PATIENT
  Age: 73 Year
  Sex: Female

DRUGS (1)
  1. MUPIROCIN TEVA [Suspect]
     Active Substance: MUPIROCIN
     Indication: RHINITIS
     Route: 065
     Dates: start: 20200608, end: 20200610

REACTIONS (5)
  - Product dispensing error [Unknown]
  - Incorrect route of product administration [Unknown]
  - Pharyngeal swelling [Recovered/Resolved]
  - Rhinalgia [Recovered/Resolved]
  - Nasal pruritus [Recovered/Resolved]

NARRATIVE: CASE EVENT DATE: 20200608
